FAERS Safety Report 6558659-9 (Version None)
Quarter: 2010Q1

REPORT INFORMATION
  Report Type: 
  Country: None (occurrence: None)
  Receive Date: 20100128
  Receipt Date: 20100128
  Transmission Date: 20100710
  Serious: Yes (Disabling)
  Sender: FDA-Public Use
  Company Number: None

PATIENT
  Sex: Male
  Weight: 68.0396 kg

DRUGS (3)
  1. ZANTAC [Suspect]
     Indication: BACK PAIN
     Dosage: 150 MG 2 DAILY
  2. TYLENOL W/ CODEINE NO. 3 [Suspect]
     Dosage: 500 MG 2 DAILY
  3. H1N1 VACCINES [Concomitant]

REACTIONS (1)
  - DRUG DEPENDENCE [None]
